FAERS Safety Report 5702592-9 (Version None)
Quarter: 2008Q2

REPORT INFORMATION
  Report Type: 
  Country: None (occurrence: None)
  Receive Date: 20080408
  Receipt Date: 20080326
  Transmission Date: 20081010
  Serious: Yes (Other)
  Sender: FDA-Public Use
  Company Number: 2008008120

PATIENT
  Age: 60 Year
  Sex: Male

DRUGS (2)
  1. CETIRIZINE HCL [Suspect]
     Indication: DERMOGRAPHISM
     Dosage: 10 MG, ORAL
     Route: 048
     Dates: start: 20061201, end: 20080201
  2. DESLORATADINE (DESLORATADINE) [Concomitant]

REACTIONS (1)
  - SUPRAVENTRICULAR EXTRASYSTOLES [None]
